FAERS Safety Report 7366779-4 (Version None)
Quarter: 2011Q1

REPORT INFORMATION
  Report Type: 
  Country: None (occurrence: None)
  Receive Date: 20110322
  Receipt Date: 20110313
  Transmission Date: 20110831
  Serious: Yes (Other)
  Sender: FDA-Public Use
  Company Number: DZ-ROCHE-758597

PATIENT
  Sex: Female

DRUGS (5)
  1. TRASTUZUMAB [Suspect]
     Indication: BREAST NEOPLASM
     Dosage: ROUTE: INFUSION. FREQUENCY: PER CURE, CHARGE DOSE.
     Route: 050
     Dates: start: 20100927
  2. BECONASE [Concomitant]
     Indication: ASTHMA
     Dosage: DOSE AND FREQUENCY: UNKNOWN. START DATE: YEARS.
     Route: 048
  3. TAXOL [Concomitant]
     Dosage: DRUG NAME REPORTED AS TAXOTERE (TAXOL). DOSE: 6 CURES.
     Dates: start: 20100901, end: 20101101
  4. TRASTUZUMAB [Suspect]
     Dosage: MAINTENANCE DOSE. FREQUENCY REPORTED AS PER CURE. TEMPORARILY DISCONTINUED.
     Route: 050
     Dates: end: 20110127
  5. SOLUPRED [Concomitant]
     Indication: ASTHMA
     Dosage: DOSE AND FREQUENCY: UNKNOWN. START DATE: YEARS.
     Route: 048

REACTIONS (3)
  - CHEST PAIN [None]
  - VENTRICULAR HYPOKINESIA [None]
  - EJECTION FRACTION DECREASED [None]
